FAERS Safety Report 6075882-0 (Version None)
Quarter: 2009Q1

REPORT INFORMATION
  Report Type: 
  Country: None (occurrence: None)
  Receive Date: 20090212
  Receipt Date: 20090209
  Transmission Date: 20090719
  Serious: Yes (Hospitalization)
  Sender: FDA-Public Use
  Company Number: KR-AVENTIS-200911078GDDC

PATIENT
  Age: 64 Year
  Sex: Female

DRUGS (2)
  1. ARAVA [Suspect]
     Route: 048
  2. METHOTREXATE [Concomitant]
     Dosage: DOSE: UNK

REACTIONS (2)
  - GANGRENE [None]
  - POLYNEUROPATHY [None]
